FAERS Safety Report 5244435-6 (Version None)
Quarter: 2007Q1

REPORT INFORMATION
  Report Type: 
  Country: None (occurrence: None)
  Receive Date: 20070222
  Receipt Date: 20070125
  Transmission Date: 20070707
  Serious: Yes (Other)
  Sender: FDA-Public Use
  Company Number: US-PFIZER INC-2006029572

PATIENT
  Sex: Female

DRUGS (2)
  1. BEXTRA [Suspect]
     Indication: HEADACHE
     Route: 048
  2. BEXTRA [Suspect]
     Indication: NECK PAIN

REACTIONS (1)
  - STEVENS-JOHNSON SYNDROME [None]
